FAERS Safety Report 7304776-5 (Version None)
Quarter: 2011Q1

REPORT INFORMATION
  Report Type: 
  Country: None (occurrence: None)
  Receive Date: 20110222
  Receipt Date: 20110217
  Transmission Date: 20110831
  Serious: Yes (Other)
  Sender: FDA-Public Use
  Company Number: US-PFIZER INC-2010170553

PATIENT
  Sex: Female

DRUGS (3)
  1. CHANTIX [Suspect]
     Indication: SMOKING CESSATION THERAPY
     Dosage: 1 MG, UNK
     Route: 048
     Dates: start: 20070501, end: 20080101
  2. METOPROLOL [Concomitant]
     Indication: MITRAL VALVE INCOMPETENCE
     Dosage: UNK
     Dates: start: 20040101
  3. METOPROLOL [Concomitant]
     Indication: ATRIAL FIBRILLATION

REACTIONS (6)
  - SYNCOPE [None]
  - DEPRESSION [None]
  - PALPITATIONS [None]
  - MENTAL DISORDER [None]
  - ANXIETY [None]
  - SUICIDAL IDEATION [None]
